FAERS Safety Report 8210919-1 (Version None)
Quarter: 2012Q1

REPORT INFORMATION
  Report Type: 
  Country: None (occurrence: None)
  Receive Date: 20120315
  Receipt Date: 20120307
  Transmission Date: 20120608
  Serious: Yes (Hospitalization, Other)
  Sender: FDA-Public Use
  Company Number: US-BAYER-2012-001239

PATIENT
  Age: 29 Year
  Sex: Female
  Weight: 76 kg

DRUGS (3)
  1. YAZ [Suspect]
     Indication: ORAL CONTRACEPTION
     Dosage: UNK
     Dates: start: 20090801, end: 20100101
  2. YAZ [Suspect]
     Indication: ACNE
  3. YAZ [Suspect]
     Indication: MENSTRUAL CYCLE MANAGEMENT

REACTIONS (8)
  - PAIN [None]
  - EMOTIONAL DISTRESS [None]
  - INJURY [None]
  - FEAR OF DEATH [None]
  - PULMONARY EMBOLISM [None]
  - PULMONARY INFARCTION [None]
  - DEPRESSION [None]
  - NERVOUSNESS [None]
